FAERS Safety Report 25308864 (Version 1)
Quarter: 2025Q2

REPORT INFORMATION
  Report Type: Spontaneous
  Country: US (occurrence: US)
  Receive Date: 20250513
  Receipt Date: 20250513
  Transmission Date: 20250717
  Serious: No
  Sender: SANOFI AVENTIS
  Company Number: US-SA-2025SA134898

PATIENT

DRUGS (1)
  1. DUPIXENT [Suspect]
     Active Substance: DUPILUMAB
     Indication: Dermatitis atopic
     Route: 065
     Dates: start: 202502

REACTIONS (3)
  - Dermatitis contact [Unknown]
  - Angular cheilitis [Unknown]
  - Erythema [Unknown]

NARRATIVE: CASE EVENT DATE: 20250401
